FAERS Safety Report 24992338 (Version 1)
Quarter: 2025Q1

REPORT INFORMATION
  Report Type: Spontaneous
  Country: US (occurrence: US)
  Receive Date: 20250220
  Receipt Date: 20250220
  Transmission Date: 20250408
  Serious: No
  Sender: SANDOZ
  Company Number: US-SANDOZ-SDZ2025US009343

PATIENT
  Age: 72 Year
  Sex: Male

DRUGS (8)
  1. ARIKAYCE [Suspect]
     Active Substance: AMIKACIN
     Indication: Mycobacterium abscessus infection
     Dosage: 590 MG, QD
     Route: 055
     Dates: start: 20241118, end: 20250207
  2. CEFOXITIN [Suspect]
     Active Substance: CEFOXITIN SODIUM
     Indication: Mycobacterium abscessus infection
     Dosage: 4 MG, BID
     Route: 042
  3. CEFOXITIN [Suspect]
     Active Substance: CEFOXITIN SODIUM
     Route: 042
  4. IMIPENEM [Suspect]
     Active Substance: IMIPENEM
     Indication: Mycobacterium abscessus infection
     Dosage: 1 MG, BID
     Route: 042
  5. IMIPENEM [Suspect]
     Active Substance: IMIPENEM
     Route: 042
  6. TIGECYCLINE [Suspect]
     Active Substance: TIGECYCLINE
     Indication: Mycobacterium abscessus infection
     Dosage: 25 MG, BID
     Route: 042
  7. TIGECYCLINE [Suspect]
     Active Substance: TIGECYCLINE
     Dosage: 50 MG, BID, AFTER 3 DAYS
     Route: 042
  8. TEDIZOLID [Suspect]
     Active Substance: TEDIZOLID
     Indication: Mycobacterium abscessus infection
     Dosage: 200 MG, QD
     Route: 048
     Dates: start: 20241118, end: 20241119

REACTIONS (1)
  - Abdominal discomfort [Unknown]
